FAERS Safety Report 6066691-7 (Version None)
Quarter: 2009Q1

REPORT INFORMATION
  Report Type: 
  Country: None (occurrence: None)
  Receive Date: 20090205
  Receipt Date: 20080213
  Transmission Date: 20090719
  Serious: No
  Sender: FDA-Public Use
  Company Number: US-ABBOTT-08P-163-0438508-00

PATIENT
  Sex: Female
  Weight: 63.56 kg

DRUGS (5)
  1. VICODIN [Suspect]
     Indication: BACK PAIN
     Route: 048
     Dates: start: 20071212
  2. LYCERICA [Concomitant]
     Indication: NEURALGIA
     Route: 048
     Dates: start: 20071211
  3. METFORMIN [Concomitant]
     Indication: DIABETES MELLITUS
     Route: 048
  4. ATORVASTATIN CALCIUM [Concomitant]
     Indication: BLOOD CHOLESTEROL
     Route: 048
  5. LISINOPRIL [Concomitant]
     Indication: HYPERTENSION
     Route: 048

REACTIONS (2)
  - BREAKTHROUGH PAIN [None]
  - DRUG TOLERANCE [None]
